FAERS Safety Report 12569507 (Version 1)
Quarter: 2016Q3

REPORT INFORMATION
  Report Type: Spontaneous
  Country: US (occurrence: None)
  Receive Date: 20160718
  Receipt Date: 20160718
  Transmission Date: 20161109
  Serious: No
  Sender: FDA-Public Use
  Company Number: None

PATIENT
  Age: 66 Year
  Sex: Male
  Weight: 125.8 kg

DRUGS (1)
  1. LEDIPASVIR/SOFOSBUVIR [Suspect]
     Active Substance: LEDIPASVIR\SOFOSBUVIR
     Indication: HEPATITIS C
     Dosage: 90/400 MG EVERY DAY PO
     Route: 048
     Dates: start: 20151106, end: 20151201

REACTIONS (3)
  - Nausea [None]
  - Insomnia [None]
  - Vomiting [None]

NARRATIVE: CASE EVENT DATE: 20151201
